FAERS Safety Report 24768092 (Version 1)
Quarter: 2024Q4

REPORT INFORMATION
  Report Type: Report from Study
  Country: US (occurrence: US)
  Receive Date: 20241223
  Receipt Date: 20241223
  Transmission Date: 20250114
  Serious: Yes (Other)
  Sender: ABBVIE
  Company Number: US-ABBVIE-6054372

PATIENT
  Age: 71 Year
  Sex: Female

DRUGS (1)
  1. SKYRIZI [Suspect]
     Active Substance: RISANKIZUMAB-RZAA
     Indication: Crohn^s disease
     Route: 058
     Dates: start: 20240604

REACTIONS (5)
  - Spinal fracture [Recovering/Resolving]
  - Weight decreased [Recovered/Resolved with Sequelae]
  - Spinal disorder [Unknown]
  - Localised infection [Recovering/Resolving]
  - Volvulus [Unknown]

NARRATIVE: CASE EVENT DATE: 20240101
